FAERS Safety Report 8336610-9 (Version None)
Quarter: 2012Q2

REPORT INFORMATION
  Report Type: 
  Country: None (occurrence: None)
  Receive Date: 20120504
  Receipt Date: 20120423
  Transmission Date: 20120825
  Serious: Yes (Life-Threatening, Hospitalization)
  Sender: FDA-Public Use
  Company Number: JP-PFIZER INC-2009248903

PATIENT
  Age: 77 Year
  Sex: Male
  Weight: 47.5 kg

DRUGS (2)
  1. TS-1 [Suspect]
     Indication: PANCREATIC CARCINOMA
     Dosage: 60 MG, 2X/DAY
     Route: 048
     Dates: start: 20090626, end: 20090710
  2. IRINOTECAN HCL [Suspect]
     Indication: PANCREATIC CARCINOMA
     Dosage: 100 MG/M2
     Route: 041
     Dates: start: 20090626, end: 20090710

REACTIONS (14)
  - MALAISE [None]
  - DEHYDRATION [None]
  - GASTROINTESTINAL NECROSIS [None]
  - HYPERGLYCAEMIA [None]
  - GENERAL PHYSICAL HEALTH DETERIORATION [None]
  - INTESTINAL PERFORATION [None]
  - ANAEMIA [None]
  - UPPER GASTROINTESTINAL HAEMORRHAGE [None]
  - SUBCLAVIAN VEIN THROMBOSIS [None]
  - RENAL FAILURE ACUTE [None]
  - INFECTIOUS PERITONITIS [None]
  - DISSEMINATED INTRAVASCULAR COAGULATION [None]
  - DECREASED APPETITE [None]
  - OEDEMA PERIPHERAL [None]
